FAERS Safety Report 4607589-8 (Version None)
Quarter: 2005Q1

REPORT INFORMATION
  Report Type: 
  Country: None (occurrence: None)
  Receive Date: 20050314
  Receipt Date: 20050228
  Transmission Date: 20050727
  Serious: Yes (Hospitalization)
  Sender: FDA-Public Use
  Company Number: PHHO2005NL03510

PATIENT
  Age: 23 Year
  Sex: Female

DRUGS (16)
  1. DICLOFENAC SODIUM [Suspect]
     Indication: SINUSITIS
  2. LANTUS [Concomitant]
  3. VENTOLIN [Concomitant]
  4. PANCREASE [Concomitant]
  5. FLUIMUCIL [Concomitant]
  6. CIPROXIN [Concomitant]
  7. COLISTIN SULFATE [Concomitant]
  8. COTRIM [Concomitant]
  9. FLUCONAZOLE [Concomitant]
  10. FORTIMEL [Concomitant]
  11. PULMOZYME [Concomitant]
  12. RANITIDINE [Concomitant]
  13. RHINOCORT [Concomitant]
  14. VITAMIN E [Concomitant]
  15. ZITHROMAX [Concomitant]
  16. AMIKACIN [Suspect]

REACTIONS (4)
  - ABDOMINAL PAIN UPPER [None]
  - GASTROENTERITIS [None]
  - NAUSEA [None]
  - VOMITING [None]
